FAERS Safety Report 12487525 (Version 1)
Quarter: 2016Q2

REPORT INFORMATION
  Report Type: Spontaneous
  Country: US (occurrence: None)
  Receive Date: 20160621
  Receipt Date: 20160621
  Transmission Date: 20160815
  Serious: Yes (Life-Threatening)
  Sender: FDA-Public Use
  Company Number: None

PATIENT
  Age: 71 Year
  Sex: Male
  Weight: 105.9 kg

DRUGS (1)
  1. FUROSEMIDE. [Suspect]
     Active Substance: FUROSEMIDE
     Indication: FLUID OVERLOAD
     Route: 042
     Dates: start: 20160406, end: 20160406

REACTIONS (7)
  - Dyspnoea [None]
  - Hypertension [None]
  - Wheezing [None]
  - Hypersensitivity [None]
  - Tachycardia [None]
  - Cough [None]
  - Respiratory depression [None]

NARRATIVE: CASE EVENT DATE: 20160406
